FAERS Safety Report 9321116 (Version 2)
Quarter: 2013Q2

REPORT INFORMATION
  Report Type: Report from Study
  Country: CL (occurrence: CL)
  Receive Date: 20130531
  Receipt Date: 20130607
  Transmission Date: 20140414
  Serious: Yes (Hospitalization, Other)
  Sender: FDA-Public Use
  Company Number: CL-ROCHE-1169591

PATIENT
  Age: 64 Year
  Sex: Female
  Weight: 42 kg

DRUGS (5)
  1. PEGASYS [Suspect]
     Indication: HEPATITIS C
     Route: 058
     Dates: start: 20121112, end: 20130531
  2. RIBAVIRIN [Suspect]
     Indication: HEPATITIS C
     Route: 048
     Dates: start: 20121112, end: 20130531
  3. LEVOTHYROXINE [Concomitant]
     Indication: HYPOTHYROIDISM
  4. ENALAPRIL [Concomitant]
     Indication: HYPERTENSION
  5. VALSARTAN [Concomitant]
     Indication: HYPERTENSION
     Route: 065
     Dates: start: 20130522

REACTIONS (11)
  - Anaemia [Not Recovered/Not Resolved]
  - White blood cell count decreased [Not Recovered/Not Resolved]
  - Urinary tract infection [Recovering/Resolving]
  - Haematocrit decreased [Not Recovered/Not Resolved]
  - Platelet count decreased [Not Recovered/Not Resolved]
  - White blood cell count decreased [Not Recovered/Not Resolved]
  - Nausea [Not Recovered/Not Resolved]
  - Decreased appetite [Not Recovered/Not Resolved]
  - Muscular weakness [Not Recovered/Not Resolved]
  - Platelet count decreased [Not Recovered/Not Resolved]
  - Cough [Unknown]
